FAERS Safety Report 8855066 (Version 1)
Quarter: 2012Q4

REPORT INFORMATION
  Report Type: 
  Country: CO (occurrence: CO)
  Receive Date: 20121023
  Receipt Date: 20121023
  Transmission Date: 20130627
  Serious: Yes (Hospitalization)
  Sender: FDA-Public Use
  Company Number: CO-UCBSA-068913

PATIENT
  Age: 75 Year
  Sex: Female

DRUGS (5)
  1. CIMZIA [Suspect]
     Indication: RHEUMATOID ARTHRITIS
     Route: 058
     Dates: start: 20120306, end: 20120722
  2. METHOTREXATE [Concomitant]
     Dosage: DAILY DOSE: 15 MG
  3. CLOROQUINE [Concomitant]
     Dosage: DAILY DOSE: 150 MG
  4. PREDNISOLONE [Concomitant]
     Dosage: DAILY DOSE: 5 MG
  5. VALPROATE [Concomitant]
     Indication: EPILEPSY

REACTIONS (3)
  - Tonic clonic movements [Unknown]
  - Urinary incontinence [Unknown]
  - Urinary tract infection [Unknown]
